FAERS Safety Report 6715025-0 (Version None)
Quarter: 2010Q2

REPORT INFORMATION
  Report Type: 
  Country: None (occurrence: None)
  Receive Date: 20100507
  Receipt Date: 20100429
  Transmission Date: 20101027
  Serious: Yes (Hospitalization)
  Sender: FDA-Public Use
  Company Number: ZA-PFIZER INC-2010054130

PATIENT
  Sex: Female

DRUGS (4)
  1. XANOR [Suspect]
     Dosage: 5 TABLETS
     Route: 048
     Dates: start: 20100429, end: 20100429
  2. ETHANOL [Suspect]
     Dosage: UNK
  3. DIOTROXIN [Concomitant]
     Dosage: UNK
     Route: 048
  4. LIPITOR [Concomitant]
     Dosage: UNK
     Route: 048

REACTIONS (2)
  - EUPHORIC MOOD [None]
  - OVERDOSE [None]
